FAERS Safety Report 9527971 (Version 2)
Quarter: 2013Q4

REPORT INFORMATION
  Report Type: Spontaneous
  Country: US (occurrence: US)
  Receive Date: 20130917
  Receipt Date: 20131003
  Transmission Date: 20140711
  Serious: No
  Sender: FDA-Public Use
  Company Number: US-JNJFOC-20130905437

PATIENT
  Age: 51 Year
  Sex: Female
  Weight: 61.24 kg

DRUGS (7)
  1. FENTANYL [Suspect]
     Indication: BACK DISORDER
     Route: 062
     Dates: start: 20130829
  2. GABAPENTIN [Concomitant]
     Indication: NEURALGIA
     Route: 048
     Dates: start: 2006
  3. HYDROCODONE [Concomitant]
     Indication: PAIN
     Dosage: 10/325 MG
     Route: 048
     Dates: start: 2009
  4. MELOXICAM [Concomitant]
     Indication: ARTHRITIS
     Route: 048
     Dates: start: 1999
  5. TIZANIDINE [Concomitant]
     Indication: MUSCLE RELAXANT THERAPY
     Route: 048
     Dates: start: 2006
  6. SPIRIVA [Concomitant]
     Indication: CHRONIC OBSTRUCTIVE PULMONARY DISEASE
     Route: 048
     Dates: start: 2006
  7. PROAIR HFA [Concomitant]
     Route: 065
     Dates: start: 2006

REACTIONS (7)
  - Wrong technique in drug usage process [Not Recovered/Not Resolved]
  - Wrong technique in drug usage process [Unknown]
  - Poor quality drug administered [Unknown]
  - Product quality issue [Unknown]
  - Product quality issue [Not Recovered/Not Resolved]
  - Drug administered at inappropriate site [Not Recovered/Not Resolved]
  - Product quality issue [Not Recovered/Not Resolved]
